FAERS Safety Report 9658222 (Version 1)
Quarter: 2013Q4

REPORT INFORMATION
  Report Type: Spontaneous
  Country: US (occurrence: US)
  Receive Date: 20131030
  Receipt Date: 20131030
  Transmission Date: 20140711
  Serious: Yes (Other)
  Sender: FDA-Public Use
  Company Number: US-NAPPMUNDI-USA-2012-0081333

PATIENT
  Age: 28 Year
  Sex: Male

DRUGS (3)
  1. OXYCODONE HYDROCHLORIDE (SIMILAR TO NDA 22-272) [Suspect]
     Indication: PRODUCT USED FOR UNKNOWN INDICATION
  2. TRICHLOROMONOFLUOROMETHANE [Suspect]
     Indication: SUBSTANCE ABUSE
  3. MARIJUANA [Suspect]
     Indication: SUBSTANCE ABUSE

REACTIONS (3)
  - Substance abuse [Unknown]
  - Euphoric mood [Unknown]
  - Impaired driving ability [Unknown]
